FAERS Safety Report 20172192 (Version 1)
Quarter: 2021Q4

REPORT INFORMATION
  Report Type: Spontaneous
  Country: SE (occurrence: SE)
  Receive Date: 20211210
  Receipt Date: 20211210
  Transmission Date: 20220304
  Serious: Yes (Hospitalization)
  Sender: FDA-Public Use
  Company Number: None

PATIENT
  Age: 76 Year
  Sex: Male

DRUGS (24)
  1. OXYCODONE HYDROCHLORIDE [Suspect]
     Active Substance: OXYCODONE HYDROCHLORIDE
     Indication: Product used for unknown indication
     Dosage: 1 VB
     Route: 065
  2. AMITRIPTYLINE [Suspect]
     Active Substance: AMITRIPTYLINE
     Indication: Product used for unknown indication
     Dosage: 40 MG, DAILY
     Route: 065
     Dates: end: 202110
  3. BEZAFIBRATE [Suspect]
     Active Substance: BEZAFIBRATE
     Indication: Product used for unknown indication
     Dosage: 200 MG, DAILY
     Route: 065
     Dates: end: 202110
  4. RENVELA [Concomitant]
     Active Substance: SEVELAMER CARBONATE
     Indication: Product used for unknown indication
     Dosage: 3X3
     Route: 065
     Dates: start: 20210727
  5. INOLAXOL                           /00561901/ [Concomitant]
     Indication: Product used for unknown indication
     Dosage: 1X1-3 ELLER VB
     Route: 065
     Dates: start: 20210120
  6. OZEMPIC [Concomitant]
     Active Substance: SEMAGLUTIDE
     Indication: Product used for unknown indication
     Dosage: 1 MG/V
     Route: 065
     Dates: start: 20210604
  7. LEVOTHYROXINE SODIUM [Concomitant]
     Active Substance: LEVOTHYROXINE SODIUM
     Indication: Product used for unknown indication
     Dosage: 1 TABLETT 4 GGR/V
     Route: 065
     Dates: start: 20210604
  8. LEVOTHYROXINE SODIUM [Concomitant]
     Active Substance: LEVOTHYROXINE SODIUM
     Dosage: 1 TABLETT 3 GGR/V
     Route: 065
     Dates: start: 20210604
  9. TRESIBA [Concomitant]
     Active Substance: INSULIN DEGLUDEC
     Indication: Product used for unknown indication
     Dosage: 90 IU, DAILY
     Route: 065
  10. ALFACALCIDOL ORIFARM [Concomitant]
     Indication: Product used for unknown indication
     Dosage: 1X1
     Route: 065
     Dates: start: 20210604
  11. HUMALOG JUNIOR KWIKPEN [Concomitant]
     Active Substance: INSULIN LISPRO
     Indication: Product used for unknown indication
     Dosage: 54 IU, DAILY
     Route: 065
     Dates: start: 20210310
  12. HUMALOG JUNIOR KWIKPEN [Concomitant]
     Active Substance: INSULIN LISPRO
     Dosage: 2-6 IE VB
     Route: 065
     Dates: start: 20211006
  13. BISOPROLOL [Concomitant]
     Active Substance: BISOPROLOL
     Indication: Product used for unknown indication
     Dosage: 1X1
     Route: 065
     Dates: start: 20210604
  14. FOLVIDON [Concomitant]
     Indication: Product used for unknown indication
     Dosage: 1X1
     Route: 065
     Dates: start: 20210604
  15. MOMETASONE ORION [Concomitant]
     Indication: Product used for unknown indication
     Route: 065
     Dates: start: 20210215
  16. KALIUMKLORID ORIFARM [Concomitant]
     Indication: Product used for unknown indication
     Dosage: 1X1
     Route: 065
     Dates: start: 20210722
  17. DENTAN [Concomitant]
     Active Substance: SODIUM FLUORIDE
     Indication: Product used for unknown indication
     Dosage: 10 MLX1-2
     Route: 065
     Dates: start: 20210722
  18. FURIX [Concomitant]
     Indication: Product used for unknown indication
     Dosage: 1X2
     Route: 065
  19. FINASTERID AUROBINDO [Concomitant]
     Indication: Product used for unknown indication
     Dosage: 1X1
     Route: 065
     Dates: start: 20210604
  20. HYDROKORTISON ORIFARM [Concomitant]
     Indication: Product used for unknown indication
     Dosage: 1X2
     Route: 065
     Dates: start: 20210604
  21. SPIRONOLACTONE [Concomitant]
     Active Substance: SPIRONOLACTONE
     Indication: Product used for unknown indication
     Dosage: 0,5X1
     Route: 065
     Dates: start: 20210722
  22. ALLOPURINOL [Concomitant]
     Active Substance: ALLOPURINOL
     Indication: Product used for unknown indication
     Dosage: 1X1
     Route: 065
  23. ATORVASTATIN ACTAVIS               /01326102/ [Concomitant]
     Indication: Product used for unknown indication
     Dosage: 1X1
     Route: 065
     Dates: start: 20210604
  24. NYSTATIN [Concomitant]
     Active Substance: NYSTATIN
     Indication: Product used for unknown indication
     Dosage: 1 MLX3-4
     Route: 065
     Dates: start: 20210908

REACTIONS (2)
  - Muscle twitching [Recovering/Resolving]
  - General physical health deterioration [Recovering/Resolving]

NARRATIVE: CASE EVENT DATE: 20211001
